FAERS Safety Report 12806589 (Version 1)
Quarter: 2016Q4

REPORT INFORMATION
  Report Type: Spontaneous
  Country: US (occurrence: US)
  Receive Date: 20161004
  Receipt Date: 20161004
  Transmission Date: 20170207
  Serious: No
  Sender: FDA-Public Use
  Company Number: None

PATIENT
  Age: 56 Year
  Sex: Female
  Weight: 58.51 kg

DRUGS (3)
  1. BUPROPION HCL XL 300MG PAR PHARMACEUTICALS [Suspect]
     Active Substance: BUPROPION HYDROCHLORIDE
     Indication: MEMORY IMPAIRMENT
     Route: 048
     Dates: start: 20160820, end: 20160921
  2. BUPROPION HCL XL 300MG PAR PHARMACEUTICALS [Suspect]
     Active Substance: BUPROPION HYDROCHLORIDE
     Indication: DISTURBANCE IN ATTENTION
     Route: 048
     Dates: start: 20160820, end: 20160921
  3. BUPROPION HCL XL 300MG PAR PHARMACEUTICALS [Suspect]
     Active Substance: BUPROPION HYDROCHLORIDE
     Indication: DEPRESSION
     Route: 048
     Dates: start: 20160820, end: 20160921

REACTIONS (6)
  - Weight increased [None]
  - Drug ineffective [None]
  - Memory impairment [None]
  - Depression [None]
  - Disturbance in attention [None]
  - Product substitution issue [None]
